FAERS Safety Report 4766819-2 (Version None)
Quarter: 2005Q3

REPORT INFORMATION
  Report Type: 
  Country: None (occurrence: None)
  Receive Date: 20050912
  Receipt Date: 20050830
  Transmission Date: 20060218
  Serious: Yes (Hospitalization)
  Sender: FDA-Public Use
  Company Number: 2005-03228

PATIENT
  Age: 76 Year
  Sex: Female

DRUGS (11)
  1. VERAPAMIL [Suspect]
     Indication: HYPERTENSION
     Dosage: 180MG DAILY (SUSTAINED RELEASE), ORAL
     Route: 048
     Dates: start: 20030101
  2. TELITHROMYCIN (TELITHROMYCIN) [Suspect]
     Indication: ACUTE SINUSITIS
     Dosage: 800 MG, DAILY X 2 DAYS, ORAL
     Route: 048
     Dates: start: 20040101
  3. ESOMEPRAZOLE (ESOMEPRAZOLE) [Concomitant]
  4. TELMISARTAN (TELMISARTAN) [Concomitant]
  5. FUROSEMIDE [Concomitant]
  6. FLUTICASONE (FLUTICASONE) NASAL SPRAY [Concomitant]
  7. IPRATROPIUM (IPRATROPIUM) INHALER [Concomitant]
  8. BUDESONIDE (BUDESONIDE) INHALER [Concomitant]
  9. MONTELUKAST (MONTELUKAST) [Concomitant]
  10. WELCHOL [Concomitant]
  11. OXAPROZIN TABLET [Concomitant]

REACTIONS (5)
  - BRADYARRHYTHMIA [None]
  - DRUG INTERACTION POTENTIATION [None]
  - DRUG TOXICITY [None]
  - HYPOTENSION [None]
  - OVERDOSE [None]
